FAERS Safety Report 6572165-7 (Version None)
Quarter: 2010Q1

REPORT INFORMATION
  Report Type: 
  Country: None (occurrence: None)
  Receive Date: 20100205
  Receipt Date: 20100128
  Transmission Date: 20100710
  Serious: No
  Sender: FDA-Public Use
  Company Number: B0621382A

PATIENT
  Sex: Male

DRUGS (5)
  1. SERETIDE [Suspect]
     Indication: ASTHMA
     Dosage: 250MCG TWICE PER DAY
     Route: 055
     Dates: start: 20091120, end: 20091203
  2. HOKUNALIN [Concomitant]
     Indication: ASTHMA
     Dosage: 2MG PER DAY
     Route: 062
     Dates: start: 20091120
  3. KIPRES [Concomitant]
     Indication: ASTHMA
     Dosage: 10MG PER DAY
     Route: 048
     Dates: start: 20091120
  4. AMLODIPINE [Concomitant]
     Indication: HYPERTENSION
     Dosage: 5MG PER DAY
     Route: 048
     Dates: start: 20091120
  5. BLOPRESS [Concomitant]
     Indication: HYPERTENSION
     Dosage: 8MG PER DAY
     Route: 048
     Dates: start: 20091121

REACTIONS (2)
  - LYMPHADENOPATHY [None]
  - STOMATITIS [None]
